FAERS Safety Report 8244048-8 (Version None)
Quarter: 2012Q1

REPORT INFORMATION
  Report Type: 
  Country: None (occurrence: None)
  Receive Date: 20120329
  Receipt Date: 20120314
  Transmission Date: 20120608
  Serious: Yes (Congenital Anomaly)
  Sender: FDA-Public Use
  Company Number: DE-ARROW GEN-2012-04854

PATIENT
  Sex: Female
  Weight: 3.32 kg

DRUGS (2)
  1. LAMOTRIGINE [Suspect]
     Indication: BIPOLAR DISORDER
     Dosage: 400 MG DAILY/FIRST TRIMESTER 350 MG DAILY
     Route: 064
     Dates: start: 20101213, end: 20110922
  2. FOLIC ACID [Concomitant]
     Indication: PROPHYLAXIS OF NEURAL TUBE DEFECT
     Dosage: 5 MG DAILY
     Route: 064
     Dates: start: 20101213

REACTIONS (2)
  - HAEMANGIOMA [None]
  - HIP DYSPLASIA [None]
